FAERS Safety Report 5503740-6 (Version None)
Quarter: 2007Q4

REPORT INFORMATION
  Report Type: 
  Country: None (occurrence: None)
  Receive Date: 20071030
  Receipt Date: 20071030
  Transmission Date: 20080405
  Serious: Yes (Other)
  Sender: FDA-Public Use
  Company Number: None

PATIENT
  Sex: Female
  Weight: 101.1521 kg

DRUGS (7)
  1. ALLI (ORLISTAT) [Suspect]
     Indication: OBESITY
     Dosage: 60 MG PO BID
     Route: 048
     Dates: start: 20071027, end: 20071028
  2. CLONIDINE [Concomitant]
  3. BENICAR [Concomitant]
  4. LASIX [Concomitant]
  5. ATENOLOL [Concomitant]
  6. OMEPRAZOLE [Concomitant]
  7. ASPIRIN [Concomitant]

REACTIONS (3)
  - OEDEMA PERIPHERAL [None]
  - PRURITUS [None]
  - URTICARIA [None]
